FAERS Safety Report 13360250 (Version 1)
Quarter: 2017Q1

REPORT INFORMATION
  Report Type: Spontaneous
  Country: US (occurrence: US)
  Receive Date: 20170322
  Receipt Date: 20170322
  Transmission Date: 20170429
  Serious: No
  Sender: FDA-Public Use
  Company Number: US-ASTRAZENECA-2017SE28777

PATIENT
  Age: 32 Year
  Sex: Female

DRUGS (1)
  1. BYDUREON [Suspect]
     Active Substance: EXENATIDE
     Indication: TYPE 2 DIABETES MELLITUS
     Route: 058
     Dates: start: 20170228

REACTIONS (9)
  - Injection site pain [Not Recovered/Not Resolved]
  - Injection site haemorrhage [Unknown]
  - Injection site reaction [Unknown]
  - Injection site warmth [Not Recovered/Not Resolved]
  - Injection site erythema [Recovered/Resolved]
  - Injection site pruritus [Unknown]
  - Injection site discolouration [Recovering/Resolving]
  - Injection site bruising [Unknown]
  - Injection site nodule [Unknown]

NARRATIVE: CASE EVENT DATE: 20170228
